FAERS Safety Report 6084118-6 (Version None)
Quarter: 2009Q1

REPORT INFORMATION
  Report Type: 
  Country: None (occurrence: None)
  Receive Date: 20090219
  Receipt Date: 20090213
  Transmission Date: 20090719
  Serious: Yes (Other)
  Sender: FDA-Public Use
  Company Number: JP-MERCK-0902USA00500

PATIENT
  Age: 68 Year
  Sex: Female

DRUGS (5)
  1. FOSAMAX [Suspect]
     Indication: OSTEOPOROSIS
     Route: 048
     Dates: start: 20080101, end: 20081118
  2. MUCOSTA [Suspect]
     Indication: GASTRITIS
     Route: 048
     Dates: start: 20080101, end: 20081118
  3. VOLTAREN [Suspect]
     Indication: OSTEOARTHRITIS
     Route: 048
     Dates: start: 20080101, end: 20081118
  4. DIOVAN [Concomitant]
     Indication: HYPERTENSION
     Route: 048
     Dates: start: 20060826
  5. AMLODIN [Concomitant]
     Indication: HYPERTENSION
     Route: 048
     Dates: start: 20060826

REACTIONS (1)
  - HEPATIC FUNCTION ABNORMAL [None]
